FAERS Safety Report 25505906 (Version 2)
Quarter: 2025Q3

REPORT INFORMATION
  Report Type: Spontaneous
  Country: US (occurrence: US)
  Receive Date: 20250702
  Receipt Date: 20250822
  Transmission Date: 20251021
  Serious: Yes (Hospitalization)
  Sender: SPRINGWORKS THERAPEUTIC
  Company Number: US-SPRINGWORKS THERAPEUTICS-SW-002989

PATIENT
  Age: 22 Year
  Sex: Female

DRUGS (3)
  1. OGSIVEO [Suspect]
     Active Substance: NIROGACESTAT HYDROBROMIDE
     Indication: Desmoid tumour
  2. OGSIVEO [Suspect]
     Active Substance: NIROGACESTAT HYDROBROMIDE
     Dosage: 100 MILLIGRAM, BID
  3. FAMOTIDINE [Concomitant]
     Active Substance: FAMOTIDINE
     Indication: Product used for unknown indication

REACTIONS (2)
  - Acute hepatic failure [Recovering/Resolving]
  - Dyspepsia [Not Recovered/Not Resolved]
